FAERS Safety Report 6231641-7 (Version None)
Quarter: 2009Q2

REPORT INFORMATION
  Report Type: 
  Country: None (occurrence: None)
  Receive Date: 20090611
  Receipt Date: 20090529
  Transmission Date: 20091009
  Serious: No
  Sender: FDA-Public Use
  Company Number: 2008-180654-NL

PATIENT
  Age: 20 Year
  Sex: Female

DRUGS (3)
  1. ETONOGESTREL [Suspect]
     Indication: CONTRACEPTION
     Dates: start: 20060121, end: 20090120
  2. CITALOPRAM HYDROBROMIDE [Concomitant]
  3. PARACETAMOL [Concomitant]

REACTIONS (1)
  - OVARIAN DYSGERMINOMA STAGE UNSPECIFIED [None]
